FAERS Safety Report 25280562 (Version 1)
Quarter: 2025Q2

REPORT INFORMATION
  Report Type: Spontaneous
  Country: JP (occurrence: JP)
  Receive Date: 20250508
  Receipt Date: 20250508
  Transmission Date: 20250716
  Serious: Yes (Other)
  Sender: RANBAXY
  Company Number: JP-SUN PHARMACEUTICAL INDUSTRIES LTD-2025RR-507047

PATIENT
  Age: 58 Year
  Sex: Female

DRUGS (3)
  1. OXALIPLATIN [Suspect]
     Active Substance: OXALIPLATIN
     Indication: Gastric cancer
     Route: 065
  2. CAPECITABINE [Suspect]
     Active Substance: CAPECITABINE
     Indication: Gastric cancer
     Route: 065
  3. ZOLBETUXIMAB [Suspect]
     Active Substance: ZOLBETUXIMAB
     Indication: Chemotherapy
     Route: 065

REACTIONS (8)
  - Oedema peripheral [Unknown]
  - Fatigue [Unknown]
  - Anaemia [Unknown]
  - Diarrhoea [Unknown]
  - Decreased appetite [Unknown]
  - Dysgeusia [Unknown]
  - Blood albumin decreased [Unknown]
  - COVID-19 [Unknown]
